FAERS Safety Report 7499810-6 (Version None)
Quarter: 2011Q2

REPORT INFORMATION
  Report Type: 
  Country: None (occurrence: None)
  Receive Date: 20110524
  Receipt Date: 20110517
  Transmission Date: 20111010
  Serious: Yes (Hospitalization)
  Sender: FDA-Public Use
  Company Number: CA-ROCHE-778071

PATIENT
  Sex: Female

DRUGS (1)
  1. TRASTUZUMAB [Suspect]
     Indication: GASTRIC CANCER
     Dosage: FORM: INFUSION
     Route: 042
     Dates: start: 20100811

REACTIONS (3)
  - NAUSEA [None]
  - COLOSTOMY [None]
  - VOMITING [None]
